FAERS Safety Report 18434303 (Version 1)
Quarter: 2020Q4

REPORT INFORMATION
  Report Type: Other
  Country: GB (occurrence: GB)
  Receive Date: 20201028
  Receipt Date: 20201028
  Transmission Date: 20210114
  Serious: Yes (Hospitalization)
  Sender: FDA-Public Use
  Company Number: GB-EMCURE PHARMACEUTICALS LTD-2020-EPL-001634

PATIENT
  Age: 78 Year

DRUGS (10)
  1. SODIUM ALGINATE [Concomitant]
     Active Substance: SODIUM ALGINATE
     Dosage: 10-20ML FOUR TIMES DAILY, AS NECESSARY
     Route: 048
  2. LANSOPRAZOLE. [Concomitant]
     Active Substance: LANSOPRAZOLE
     Dosage: 60 MILLIGRAM, DAILY
     Route: 048
  3. LISINOPRIL. [Suspect]
     Active Substance: LISINOPRIL
     Indication: PRODUCT USED FOR UNKNOWN INDICATION
     Dosage: 5 MILLIGRAM, DAILY,STOPPED BY GENERAL PRACTITIONER IN RUN UP TO A ADMISSION
     Route: 048
     Dates: end: 202009
  4. CODEINE [Concomitant]
     Active Substance: CODEINE
     Dosage: 240 MILLIGRAM DAILY
     Route: 048
  5. POTASSIUM CARBONATE [Concomitant]
     Active Substance: POTASSIUM CARBONATE
     Dosage: 10-20ML FOUR TIMES DAILY, AS NECESSARY.
     Route: 048
  6. LOPERAMIDE [Concomitant]
     Active Substance: LOPERAMIDE
     Dosage: 16 MILLIGRAM, DAILY
     Route: 048
  7. COLECALCIFEROL,CALCIUM [Concomitant]
     Dosage: 2 DOSAGE FORM, 400UNIT/1.5G, DAILY
     Route: 048
  8. PREDNISOLONE. [Concomitant]
     Active Substance: PREDNISOLONE
     Dosage: 5MG AND 10MG ALTERNATE DAYS.
     Route: 048
  9. ATORVASTATIN [Concomitant]
     Active Substance: ATORVASTATIN
     Dosage: 10 MILLIGRAM DAILY
     Route: 048
  10. DIORALYTE [Concomitant]
     Active Substance: CITRIC ACID MONOHYDRATE\DEXTROSE\POTASSIUM CATION\SODIUM CHLORIDE
     Dosage: IN 1 LITRE TO BE SIPPED THROUGHOUT THE DAY.
     Route: 048

REACTIONS (2)
  - Acute kidney injury [Recovering/Resolving]
  - Hypophagia [Unknown]

NARRATIVE: CASE EVENT DATE: 20200922
